FAERS Safety Report 8022402-7 (Version None)
Quarter: 2011Q4

REPORT INFORMATION
  Report Type: 
  Country: None (occurrence: None)
  Receive Date: 20111123
  Receipt Date: 20111102
  Transmission Date: 20120403
  Serious: No
  Sender: FDA-Public Use
  Company Number: 335026

PATIENT
  Age: 72 Year
  Sex: Female

DRUGS (3)
  1. GLIPIZIDE [Concomitant]
  2. VICTOZA [Suspect]
     Indication: TYPE 2 DIABETES MELLITUS
     Dosage: 0.6 MG, QD, SUBCUTANEOUS
     Route: 058
  3. VICTOZA [Suspect]
     Indication: WEIGHT CONTROL
     Dosage: 0.6 MG, QD, SUBCUTANEOUS
     Route: 058

REACTIONS (5)
  - GLYCOSYLATED HAEMOGLOBIN INCREASED [None]
  - OROPHARYNGEAL PAIN [None]
  - INCREASED UPPER AIRWAY SECRETION [None]
  - ABDOMINAL DISCOMFORT [None]
  - NAUSEA [None]
